FAERS Safety Report 6775594-1 (Version None)
Quarter: 2010Q2

REPORT INFORMATION
  Report Type: 
  Country: None (occurrence: None)
  Receive Date: 20100617
  Receipt Date: 20100609
  Transmission Date: 20101027
  Serious: Yes (Hospitalization)
  Sender: FDA-Public Use
  Company Number: DE-PFIZER INC-2010072486

PATIENT
  Age: 84 Year
  Sex: Male
  Weight: 73.1 kg

DRUGS (3)
  1. BLINDED *NO SUBJECT DRUG [Suspect]
     Indication: CARDIAC FAILURE
     Dosage: UNK
     Dates: start: 20060621
  2. BLINDED *PLACEBO [Suspect]
     Indication: CARDIAC FAILURE
     Dosage: UNK
     Dates: start: 20060621
  3. EPLERENONE [Suspect]
     Indication: CARDIAC FAILURE
     Dosage: UNK
     Dates: start: 20060621

REACTIONS (1)
  - WEIGHT DECREASED [None]
